FAERS Safety Report 8217919-6 (Version None)
Quarter: 2012Q1

REPORT INFORMATION
  Report Type: 
  Country: None (occurrence: None)
  Receive Date: 20120315
  Receipt Date: 20120229
  Transmission Date: 20120608
  Serious: Yes (Life-Threatening, Hospitalization, Other)
  Sender: FDA-Public Use
  Company Number: 2012PV000015

PATIENT
  Sex: Male

DRUGS (11)
  1. ASPIRIN [Concomitant]
  2. PANTOPRAZOLE [Concomitant]
  3. AVANDIA [Concomitant]
  4. GLIMEPIRIDE [Concomitant]
  5. DEXAMETHASONE [Concomitant]
  6. DEPOCYT [Suspect]
     Indication: ACUTE MYELOID LEUKAEMIA
     Dosage: 50 MG;1X;INTH
     Route: 037
     Dates: start: 20120214, end: 20120214
  7. DEPOCYT [Suspect]
     Indication: METASTASES TO MENINGES
     Dosage: 50 MG;1X;INTH
     Route: 037
     Dates: start: 20120214, end: 20120214
  8. METHOTREXATE [Concomitant]
  9. HYDROCHLOROTHIAZIDE [Concomitant]
  10. CYTARABINE [Concomitant]
  11. RAMIPRIL [Concomitant]

REACTIONS (13)
  - FAECAL INCONTINENCE [None]
  - VISUAL ACUITY REDUCED [None]
  - GENERAL PHYSICAL HEALTH DETERIORATION [None]
  - RESPIRATORY PARALYSIS [None]
  - PARAESTHESIA [None]
  - DYSAESTHESIA [None]
  - CRANIAL NERVE DISORDER [None]
  - MYDRIASIS [None]
  - EYELID PTOSIS [None]
  - AREFLEXIA [None]
  - URINARY INCONTINENCE [None]
  - BULBAR PALSY [None]
  - MUSCULAR WEAKNESS [None]
